FAERS Safety Report 6242535-5 (Version None)
Quarter: 2009Q2

REPORT INFORMATION
  Report Type: 
  Country: None (occurrence: None)
  Receive Date: 20090624
  Receipt Date: 20090618
  Transmission Date: 20091009
  Serious: Yes (Other)
  Sender: FDA-Public Use
  Company Number: GB-ROCHE-638988

PATIENT
  Sex: Female
  Weight: 85.7 kg

DRUGS (4)
  1. ORLISTAT [Suspect]
     Indication: OBESITY
     Route: 048
     Dates: start: 20081119
  2. PRAVASTATIN [Concomitant]
     Route: 048
  3. ATENOLOL [Concomitant]
     Indication: BLOOD PRESSURE
     Route: 048
  4. RAMIPRIL [Concomitant]
     Indication: BLOOD PRESSURE
     Dosage: REPORTED AS RAMOPRIL
     Route: 048

REACTIONS (1)
  - MALIGNANT MELANOMA [None]
